FAERS Safety Report 5831448-6 (Version None)
Quarter: 2008Q3

REPORT INFORMATION
  Report Type: 
  Country: None (occurrence: None)
  Receive Date: 20080801
  Receipt Date: 20080721
  Transmission Date: 20090109
  Serious: Yes (Other)
  Sender: FDA-Public Use
  Company Number: US-PFIZER INC-2008059954

PATIENT
  Sex: Male
  Weight: 89.8 kg

DRUGS (8)
  1. CHANTIX [Suspect]
     Indication: SMOKING CESSATION THERAPY
     Dates: start: 20080711, end: 20080701
  2. ALL OTHER THERAPEUTIC PRODUCTS [Interacting]
  3. LISINOPRIL [Concomitant]
  4. METOPROLOL [Concomitant]
     Dosage: DAILY DOSE:12.5MG-TEXT:DAILY
  5. NIASPAN [Concomitant]
  6. CRESTOR [Concomitant]
  7. ACETYLSALICYLIC ACID SRT [Concomitant]
  8. ALL OTHER THERAPEUTIC PRODUCTS [Concomitant]

REACTIONS (3)
  - BLOOD URINE PRESENT [None]
  - DRUG INTERACTION [None]
  - HAEMORRHAGE URINARY TRACT [None]
